FAERS Safety Report 12633345 (Version 2)
Quarter: 2016Q3

REPORT INFORMATION
  Report Type: Spontaneous
  Country: US (occurrence: US)
  Receive Date: 20160808
  Receipt Date: 20160808
  Transmission Date: 20161109
  Serious: No
  Sender: FDA-Public Use
  Company Number: US-BEH-2016060657

PATIENT
  Sex: Female
  Weight: 82 kg

DRUGS (22)
  1. FISH OIL [Concomitant]
     Active Substance: FISH OIL
  2. ALLEGRA-D [Concomitant]
     Active Substance: FEXOFENADINE\PSEUDOEPHEDRINE
  3. HIZENTRA [Suspect]
     Active Substance: HUMAN IMMUNOGLOBULIN G
     Indication: IMMUNODEFICIENCY COMMON VARIABLE
     Route: 058
  4. EPIPEN [Concomitant]
     Active Substance: EPINEPHRINE
  5. PROAIR HFA [Concomitant]
     Active Substance: ALBUTEROL SULFATE
  6. QVAR [Concomitant]
     Active Substance: BECLOMETHASONE DIPROPIONATE
  7. ACETAMINOPHEN. [Concomitant]
     Active Substance: ACETAMINOPHEN
  8. DIPHENHYDRAMINE. [Concomitant]
     Active Substance: DIPHENHYDRAMINE
  9. PREVACID [Concomitant]
     Active Substance: LANSOPRAZOLE
  10. PROBIOTIC [Concomitant]
     Active Substance: PROBIOTICS NOS
  11. L-M-X [Concomitant]
  12. WELLBUTRIN [Concomitant]
     Active Substance: BUPROPION HYDROCHLORIDE
  13. METOPROLOL SUCCINATE. [Concomitant]
     Active Substance: METOPROLOL SUCCINATE
  14. SINGULAIR [Concomitant]
     Active Substance: MONTELUKAST SODIUM
  15. BOTOX [Concomitant]
     Active Substance: ONABOTULINUMTOXINA
  16. PRAVASTATIN. [Concomitant]
     Active Substance: PRAVASTATIN
  17. ZYRTEC [Concomitant]
     Active Substance: CETIRIZINE HYDROCHLORIDE
  18. MOBIC [Concomitant]
     Active Substance: MELOXICAM
  19. MAGNESIUM [Concomitant]
     Active Substance: MAGNESIUM
  20. CALCIUM +D [Concomitant]
     Active Substance: CALCIUM\VITAMIN D
  21. OSTEO BI-FLEX [Concomitant]
     Active Substance: CHONDROITIN SULFATE A\GLUCOSAMINE
  22. TIZANIDINE. [Concomitant]
     Active Substance: TIZANIDINE

REACTIONS (2)
  - Sinusitis [Unknown]
  - Fungal infection [Unknown]
